FAERS Safety Report 10200721 (Version 2)
Quarter: 2015Q1

REPORT INFORMATION
  Report Type: Report from Study
  Country: TH (occurrence: TH)
  Receive Date: 20140528
  Receipt Date: 20150130
  Transmission Date: 20150720
  Serious: Yes (Other)
  Sender: FDA-Public Use
  Company Number: TH-ROCHE-1409151

PATIENT

DRUGS (2)
  1. INVIRASE [Suspect]
     Active Substance: SAQUINAVIR MESYLATE
     Route: 065
     Dates: start: 19990401, end: 19990404
  2. INVIRASE [Suspect]
     Active Substance: SAQUINAVIR MESYLATE
     Indication: RETROVIRAL INFECTION
     Route: 065
     Dates: start: 19980603

REACTIONS (1)
  - Accident [Unknown]
